FAERS Safety Report 9314389 (Version 1)
Quarter: 2013Q2

REPORT INFORMATION
  Report Type: Spontaneous
  Country: DE (occurrence: DE)
  Receive Date: 20130529
  Receipt Date: 20130529
  Transmission Date: 20140414
  Serious: Yes (Death)
  Sender: FDA-Public Use
  Company Number: DE-SANOFI-AVENTIS-2013SA051394

PATIENT
  Age: 59 Year
  Sex: Male
  Weight: 115 kg

DRUGS (1)
  1. ARAVA [Suspect]
     Indication: RHEUMATOID ARTHRITIS
     Dosage: INTAKE FOR TWO WEEKS, DOSAGE UNKNOWN
     Route: 048
     Dates: start: 20130301, end: 20130320

REACTIONS (1)
  - Pancreatitis acute [Fatal]
